FAERS Safety Report 6191458-9 (Version None)
Quarter: 2009Q2

REPORT INFORMATION
  Report Type: 
  Country: None (occurrence: None)
  Receive Date: 20090515
  Receipt Date: 20090513
  Transmission Date: 20091009
  Serious: Yes (Life-Threatening)
  Sender: FDA-Public Use
  Company Number: TR-ASTRAZENECA-2009AC01388

PATIENT
  Age: 14 Year
  Sex: Male

DRUGS (4)
  1. OMEPRAZOLE [Suspect]
     Indication: GASTRITIS
     Route: 048
  2. OMEPRAZOLE [Suspect]
     Indication: GASTRIC ULCER
     Route: 048
  3. OMEPRAZOLE [Suspect]
     Route: 048
  4. OMEPRAZOLE [Suspect]
     Route: 048

REACTIONS (1)
  - ANAPHYLACTIC REACTION [None]
